FAERS Safety Report 9816780 (Version 1)
Quarter: 2014Q1

REPORT INFORMATION
  Report Type: Spontaneous
  Country: US (occurrence: US)
  Receive Date: 20140114
  Receipt Date: 20140114
  Transmission Date: 20141002
  Serious: No
  Sender: FDA-Public Use
  Company Number: US-ENDO PHARMACEUTICALS INC.-PERC20130070

PATIENT
  Sex: Female

DRUGS (2)
  1. PERCOCET 10MG/325MG [Suspect]
     Indication: PAIN
     Dosage: 10/975 MG
     Route: 048
     Dates: start: 2006
  2. MS CONTIN [Concomitant]
     Indication: PAIN
     Dosage: UNKNOWN
     Route: 048
     Dates: start: 2006

REACTIONS (4)
  - Multiple fractures [Unknown]
  - Road traffic accident [Recovered/Resolved]
  - Withdrawal syndrome [Not Recovered/Not Resolved]
  - Drug ineffective [Not Recovered/Not Resolved]
